FAERS Safety Report 7995481-0 (Version None)
Quarter: 2011Q4

REPORT INFORMATION
  Report Type: 
  Country: None (occurrence: None)
  Receive Date: 20111220
  Receipt Date: 20110526
  Transmission Date: 20120403
  Serious: Yes (Other)
  Sender: FDA-Public Use
  Company Number: RS-BAYER-2011-045089

PATIENT
  Age: 18 Year
  Sex: Female

DRUGS (1)
  1. ULTRAVIST 370 [Suspect]
     Indication: UROGRAM
     Dosage: UNK
     Dates: start: 20110524, end: 20110524

REACTIONS (4)
  - BLOOD PRESSURE DECREASED [None]
  - GENERALISED ERYTHEMA [None]
  - CHOKING [None]
  - FACE OEDEMA [None]
